FAERS Safety Report 23098697 (Version 1)
Quarter: 2023Q4

REPORT INFORMATION
  Report Type: Spontaneous
  Country: PT (occurrence: PT)
  Receive Date: 20231024
  Receipt Date: 20231024
  Transmission Date: 20240109
  Serious: Yes (Other)
  Sender: FDA-Public Use
  Company Number: None

PATIENT
  Age: 35 Year
  Sex: Female
  Weight: 69 kg

DRUGS (1)
  1. HUMIRA [Suspect]
     Active Substance: ADALIMUMAB
     Indication: Psoriatic arthropathy
     Route: 058
     Dates: start: 20230929

REACTIONS (7)
  - Administration site warmth [Recovering/Resolving]
  - Administration site pruritus [Recovering/Resolving]
  - Administration site inflammation [Recovering/Resolving]
  - Administration site oedema [Recovering/Resolving]
  - Administration site erythema [Recovering/Resolving]
  - Administration site pain [Recovering/Resolving]
  - Skin discolouration [Recovering/Resolving]

NARRATIVE: CASE EVENT DATE: 20230929
